FAERS Safety Report 20924840 (Version 2)
Quarter: 2022Q3

REPORT INFORMATION
  Report Type: Other
  Country: CA (occurrence: CA)
  Receive Date: 20220607
  Receipt Date: 20220909
  Transmission Date: 20221027
  Serious: Yes (Life-Threatening, Hospitalization, Other)
  Sender: FDA-Public Use
  Company Number: CA-PFIZER INC-202200802283

PATIENT
  Age: 10 Year
  Sex: Male

DRUGS (11)
  1. HYDROMORPHONE HYDROCHLORIDE [Interacting]
     Active Substance: HYDROMORPHONE HYDROCHLORIDE
     Indication: Femur fracture
     Dosage: UNK
     Route: 065
  2. HYDROMORPHONE HYDROCHLORIDE [Interacting]
     Active Substance: HYDROMORPHONE HYDROCHLORIDE
     Dosage: 1 MG, 4 EVERY 1 DAY
     Route: 065
  3. DESMOPRESSIN [Interacting]
     Active Substance: DESMOPRESSIN
     Indication: Diabetes insipidus
     Dosage: 0.5 MG, 2X/DAY
     Route: 048
  4. DESMOPRESSIN [Interacting]
     Active Substance: DESMOPRESSIN
     Dosage: 0.6 MG
     Route: 048
  5. DESMOPRESSIN [Interacting]
     Active Substance: DESMOPRESSIN
     Dosage: 1.6 MG, 4X/DAY
     Route: 048
  6. IBUPROFEN [Interacting]
     Active Substance: IBUPROFEN
     Indication: Femur fracture
     Dosage: 6 MG, 4X/DAY
     Route: 065
  7. IBUPROFEN [Interacting]
     Active Substance: IBUPROFEN
     Dosage: 600 MG, 4 EVERY 1 DAY
     Route: 065
  8. DDAVP [Suspect]
     Active Substance: DESMOPRESSIN ACETATE
     Indication: Diabetes insipidus
     Dosage: 0.6 MG
     Route: 048
  9. DDAVP [Suspect]
     Active Substance: DESMOPRESSIN ACETATE
     Dosage: 0.5 MG, 2 EVERY 1 DAY
     Route: 048
  10. DDAVP [Suspect]
     Active Substance: DESMOPRESSIN ACETATE
     Dosage: 1.6 MG, 4X/DAY
     Route: 048
  11. HYDROCORTISONE [Concomitant]
     Active Substance: HYDROCORTISONE
     Indication: Diabetes insipidus
     Dosage: 6 MG, 2X/DAY
     Route: 048

REACTIONS (12)
  - Apnoea [Recovered/Resolved]
  - Blood sodium decreased [Recovered/Resolved]
  - Bruxism [Recovered/Resolved]
  - Drug interaction [Recovered/Resolved]
  - Hypernatraemia [Recovered/Resolved]
  - Hypertonia [Recovered/Resolved]
  - Lethargy [Recovered/Resolved]
  - Seizure [Recovered/Resolved]
  - Unresponsive to stimuli [Recovered/Resolved]
  - Potentiating drug interaction [Recovered/Resolved]
  - Off label use [Unknown]
  - Off label use [Unknown]
